FAERS Safety Report 25526623 (Version 2)
Quarter: 2025Q3

REPORT INFORMATION
  Report Type: Spontaneous
  Country: EU (occurrence: EU)
  Receive Date: 20250707
  Receipt Date: 20250804
  Transmission Date: 20251020
  Serious: Yes (Other)
  Sender: BAUSCH AND LOMB
  Company Number: EU-BAUSCH-BH-2025-014218

PATIENT
  Age: 71 Year
  Sex: Female

DRUGS (14)
  1. LORAZEPAM [Suspect]
     Active Substance: LORAZEPAM
     Indication: Anxiety
     Route: 065
     Dates: start: 2013
  2. CITALOPRAM [Suspect]
     Active Substance: CITALOPRAM
     Indication: Anxiety
     Route: 065
     Dates: start: 2013
  3. CITALOPRAM [Suspect]
     Active Substance: CITALOPRAM
     Route: 065
     Dates: start: 2013
  4. TRAZODONE [Suspect]
     Active Substance: TRAZODONE HYDROCHLORIDE
     Indication: Adjustment disorder with mixed disturbance of emotion and conduct
     Route: 065
  5. AMITRIPTYLINE [Concomitant]
     Active Substance: AMITRIPTYLINE
     Indication: Pain
     Dates: start: 2010, end: 2013
  6. CODEINE [Concomitant]
     Active Substance: CODEINE
     Indication: Product used for unknown indication
  7. PREGABALIN [Concomitant]
     Active Substance: PREGABALIN
     Indication: Product used for unknown indication
  8. CLORAZEPATE MONOPOTASSIUM [Concomitant]
     Active Substance: CLORAZEPATE MONOPOTASSIUM
     Indication: Mixed anxiety and depressive disorder
     Dates: start: 2013
  9. GABAPENTIN [Concomitant]
     Active Substance: GABAPENTIN
     Indication: Lumbar spinal stenosis
     Dates: end: 2012
  10. GABAPENTIN [Concomitant]
     Active Substance: GABAPENTIN
     Indication: Pain
  11. GABAPENTIN [Concomitant]
     Active Substance: GABAPENTIN
  12. ETORICOXIB [Concomitant]
     Active Substance: ETORICOXIB
     Indication: Product used for unknown indication
     Route: 048
  13. ACETAMINOPHEN [Concomitant]
     Active Substance: ACETAMINOPHEN
     Indication: Pain
     Dates: start: 2010
  14. TRAMADOL [Concomitant]
     Active Substance: TRAMADOL
     Indication: Product used for unknown indication

REACTIONS (1)
  - Therapy partial responder [Unknown]
